FAERS Safety Report 10444587 (Version 2)
Quarter: 2014Q3

REPORT INFORMATION
  Report Type: Report from Study
  Country: US (occurrence: US)
  Receive Date: 20140910
  Receipt Date: 20140910
  Transmission Date: 20150326
  Serious: Yes (Hospitalization)
  Sender: FDA-Public Use
  Company Number: US-BAYER-2014-120718

PATIENT
  Age: 65 Year
  Sex: Male
  Weight: 97.51 kg

DRUGS (5)
  1. MINOCYCLINE [Concomitant]
     Active Substance: MINOCYCLINE\MINOCYCLINE HYDROCHLORIDE
     Indication: PROPHYLAXIS
     Dosage: 100 MG, QD
     Dates: start: 20130701
  2. NEXAVAR [Suspect]
     Active Substance: SORAFENIB
     Indication: HEPATIC CANCER
     Dosage: 2 X 200 MG
     Route: 048
  3. NEXAVAR [Suspect]
     Active Substance: SORAFENIB
     Indication: HEPATIC CANCER
     Dosage: 4X200MG
     Route: 048
     Dates: start: 20130227, end: 20140630
  4. CYCLOBENZAPRINE [Concomitant]
     Active Substance: CYCLOBENZAPRINE
     Indication: MUSCLE SPASMS
     Dosage: 10 MG, QD
     Dates: start: 20140530
  5. DEMEROL [Concomitant]
     Active Substance: MEPERIDINE HYDROCHLORIDE
     Indication: PAIN
     Dosage: 50 MG, PRN
     Dates: start: 20130220

REACTIONS (3)
  - Peritonitis bacterial [Recovered/Resolved]
  - Abdominal cavity drainage [None]
  - Hospitalisation [None]

NARRATIVE: CASE EVENT DATE: 20140807
